FAERS Safety Report 4911131-1 (Version None)
Quarter: 2006Q1

REPORT INFORMATION
  Report Type: 
  Country: None (occurrence: None)
  Receive Date: 20060209
  Receipt Date: 20060129
  Transmission Date: 20060701
  Serious: Yes (Disabling)
  Sender: FDA-Public Use
  Company Number: 2006008230

PATIENT
  Age: 58 Year
  Sex: Male

DRUGS (2)
  1. VIAGRA [Suspect]
     Indication: ERECTILE DYSFUNCTION
     Dosage: 50 MG (50 MG, 1 AS NECESSARY), ORAL
     Route: 048
     Dates: start: 20060114, end: 20060114
  2. CIALIS [Suspect]
     Indication: ERECTILE DYSFUNCTION
     Dosage: 20 MG (20 MG, 1 AS NECESSARY), ORAL
     Route: 048
     Dates: start: 20060114, end: 20060114

REACTIONS (2)
  - BLINDNESS TRANSIENT [None]
  - RETINAL HAEMORRHAGE [None]
